FAERS Safety Report 8190616-1 (Version None)
Quarter: 2012Q1

REPORT INFORMATION
  Report Type: 
  Country: None (occurrence: None)
  Receive Date: 20120307
  Receipt Date: 20120214
  Transmission Date: 20120608
  Serious: Yes (Other)
  Sender: FDA-Public Use
  Company Number: US-ROCHE-1045126

PATIENT
  Sex: Female

DRUGS (2)
  1. CODEINE SULFATE [Concomitant]
  2. OMALIZUMAB [Suspect]
     Indication: ASTHMA
     Dosage: LAST DOSE PRIOR TO SAE: 06/FEB/2012
     Route: 058
     Dates: start: 20040801

REACTIONS (2)
  - LUNG DISORDER [None]
  - ANAPHYLACTIC REACTION [None]
